FAERS Safety Report 6992981-7 (Version None)
Quarter: 2010Q3

REPORT INFORMATION
  Report Type: 
  Country: None (occurrence: None)
  Receive Date: 20100917
  Receipt Date: 20100909
  Transmission Date: 20110219
  Serious: Yes (Death, Hospitalization, Other)
  Sender: FDA-Public Use
  Company Number: BR-BRISTOL-MYERS SQUIBB COMPANY-15215452

PATIENT
  Age: 30 Year
  Sex: Female

DRUGS (2)
  1. SPRYCEL [Suspect]
     Indication: LEUKAEMIA
  2. ARACYTINE [Suspect]

REACTIONS (5)
  - FEBRILE NEUTROPENIA [None]
  - HYPERSPLENISM [None]
  - MALIGNANT NEOPLASM PROGRESSION [None]
  - PREGNANCY [None]
  - SEPTIC SHOCK [None]
